FAERS Safety Report 9291080 (Version 2)
Quarter: 2013Q2

REPORT INFORMATION
  Report Type: Report from Study
  Country: JP (occurrence: JP)
  Receive Date: 20130515
  Receipt Date: 20130618
  Transmission Date: 20140414
  Serious: Yes (Death, Hospitalization)
  Sender: FDA-Public Use
  Company Number: JP-PFIZER INC-2013144814

PATIENT
  Age: 85 Year
  Sex: Female
  Weight: 34.4 kg

DRUGS (5)
  1. SILDENAFIL CITRATE [Suspect]
     Indication: PULMONARY ARTERIAL HYPERTENSION
     Dosage: 20 MG, 1X/DAY
     Dates: start: 20090615, end: 20090621
  2. SILDENAFIL CITRATE [Suspect]
     Dosage: 20 MG, 2X/DAY
     Dates: start: 20090622, end: 20090830
  3. SILDENAFIL CITRATE [Suspect]
     Dosage: 20 MG, 3X/DAY
     Dates: start: 20090831
  4. LASIX FOR INJECTION [Concomitant]
     Dosage: UNK
     Dates: start: 20120520, end: 20120622
  5. HEPARIN [Concomitant]
     Dosage: UNK
     Route: 042
     Dates: start: 20120525, end: 20120621

REACTIONS (1)
  - Cholecystitis [Fatal]
